FAERS Safety Report 25284074 (Version 2)
Quarter: 2025Q3

REPORT INFORMATION
  Report Type: Report from Study
  Country: US (occurrence: US)
  Receive Date: 20250508
  Receipt Date: 20250715
  Transmission Date: 20251020
  Serious: Yes (Death, Hospitalization, Other)
  Sender: TAKEDA
  Company Number: US-TAKEDA-2025TUS015145

PATIENT
  Age: 81 Year
  Sex: Female
  Weight: 62 kg

DRUGS (2)
  1. GLASSIA [Suspect]
     Active Substance: .ALPHA.1-PROTEINASE INHIBITOR HUMAN
     Indication: Alpha-1 antitrypsin deficiency
     Dosage: 60 MILLIGRAM/KILOGRAM, 1/WEEK
     Dates: start: 20060206
  2. GLASSIA [Suspect]
     Active Substance: .ALPHA.1-PROTEINASE INHIBITOR HUMAN
     Dosage: 60 MILLIGRAM/KILOGRAM, 1/WEEK
     Dates: start: 20190501

REACTIONS (6)
  - Myocardial infarction [Fatal]
  - Nephrolithiasis [Recovering/Resolving]
  - Urinary tract infection [Recovering/Resolving]
  - Sputum culture positive [Unknown]
  - Malaise [Unknown]
  - Rhinorrhoea [Unknown]
